FAERS Safety Report 7998757-6 (Version None)
Quarter: 2011Q4

REPORT INFORMATION
  Report Type: 
  Country: None (occurrence: None)
  Receive Date: 20111221
  Receipt Date: 20111207
  Transmission Date: 20120403
  Serious: Yes (Other)
  Sender: FDA-Public Use
  Company Number: GB-WATSON-2009-12317

PATIENT
  Age: 81 Year
  Sex: Male

DRUGS (9)
  1. ATENOLOL [Concomitant]
  2. PROPOXYPHENE NAPSYLATE [Concomitant]
  3. FUROSEMIDE [Concomitant]
  4. LAMOTRIGINE [Concomitant]
  5. CLOPIDOGREL [Concomitant]
  6. LEVETIRACETAM [Concomitant]
  7. ACETAMINOPHEN [Concomitant]
  8. RAMIPRIL [Suspect]
     Indication: HYPERTENSION
     Dosage: 5 MG, DAILY
     Route: 048
  9. PRAVASTATIN [Concomitant]

REACTIONS (2)
  - ANGIOEDEMA [None]
  - LICHEN PLANUS [None]
